FAERS Safety Report 9990676 (Version 1)
Quarter: 2014Q1

REPORT INFORMATION
  Report Type: Report from Study
  Country: US (occurrence: US)
  Receive Date: 20140310
  Receipt Date: 20140310
  Transmission Date: 20141002
  Serious: No
  Sender: FDA-Public Use
  Company Number: US-ABBVIE-13P-163-1134818-00

PATIENT
  Sex: Female

DRUGS (12)
  1. HUMIRA [Suspect]
     Indication: ANKYLOSING SPONDYLITIS
  2. HUMIRA [Suspect]
     Indication: PULMONARY FIBROSIS
  3. MEGESTROL [Concomitant]
     Indication: PULMONARY FIBROSIS
     Route: 048
  4. QUVAR [Concomitant]
     Indication: PULMONARY FIBROSIS
  5. ALBUTEROL [Concomitant]
     Indication: PULMONARY FIBROSIS
     Dosage: EVERY 4-6 HOURS
  6. ZITHROMAX [Concomitant]
     Indication: PULMONARY FIBROSIS
     Dosage: DAILY
     Route: 048
  7. ATIVAN [Concomitant]
     Indication: PULMONARY FIBROSIS
     Dosage: 0.5MG BY MOUTH EVERY 12 HOURS
     Route: 048
  8. BUSPIRONE [Concomitant]
     Indication: PULMONARY FIBROSIS
     Route: 048
  9. PROMETHAZINE - CODEINE [Concomitant]
     Indication: PULMONARY FIBROSIS
     Dosage: EVERY 4 HOURS
     Route: 048
  10. MIDNIGHT SUPPLEMENT [Concomitant]
     Indication: SLEEP DISORDER THERAPY
     Dosage: AT BEDTIME
     Route: 048
  11. MIDNIGHT SUPPLEMENT [Concomitant]
     Indication: PULMONARY FIBROSIS
  12. LYSINE [Concomitant]
     Indication: NUTRITIONAL SUPPLEMENTATION
     Dosage: DAILY
     Route: 048

REACTIONS (5)
  - Incorrect route of drug administration [Unknown]
  - Wrong technique in drug usage process [Unknown]
  - Injury associated with device [Unknown]
  - Injection site pain [Unknown]
  - Drug administration error [Unknown]
